FAERS Safety Report 7699314-1 (Version None)
Quarter: 2011Q3

REPORT INFORMATION
  Report Type: 
  Country: None (occurrence: None)
  Receive Date: 20110819
  Receipt Date: 20110809
  Transmission Date: 20111222
  Serious: Yes (Hospitalization, Other)
  Sender: FDA-Public Use
  Company Number: US-BAYER-201040541NA

PATIENT
  Age: 18 Year
  Sex: Female
  Weight: 72.562 kg

DRUGS (3)
  1. YASMIN [Suspect]
     Indication: CONTRACEPTION
     Dosage: UNK
     Route: 048
     Dates: start: 20020601, end: 20050701
  2. MYLANTA [Concomitant]
     Dosage: UNK
     Dates: start: 20040511
  3. NYQUIL [Concomitant]
     Dosage: UNK
     Dates: start: 20040511

REACTIONS (10)
  - CHOLELITHIASIS [None]
  - UNEVALUABLE EVENT [None]
  - ABDOMINAL DISCOMFORT [None]
  - CHOLECYSTITIS CHRONIC [None]
  - GALLBLADDER DISORDER [None]
  - DEHYDRATION [None]
  - CHOLECYSTITIS ACUTE [None]
  - VOMITING [None]
  - PAIN [None]
  - MUSCLE SPASMS [None]
